FAERS Safety Report 5378041-X (Version None)
Quarter: 2007Q2

REPORT INFORMATION
  Report Type: 
  Country: None (occurrence: None)
  Receive Date: 20070629
  Receipt Date: 20070620
  Transmission Date: 20071010
  Serious: Yes (Other)
  Sender: FDA-Public Use
  Company Number: B0476799A

PATIENT
  Age: 70 Year
  Sex: Male

DRUGS (4)
  1. CEPHAZOLIN SODIUM (FORMULATION UNKNOWN) (GENERIC) ( CEPHAZOLIN SODIUM) [Suspect]
  2. WHOLE BLOOD [Concomitant]
  3. DILTIAZEM HYDROCHLORIDE [Concomitant]
  4. WARFARIN SODIUM [Concomitant]

REACTIONS (4)
  - ATRIAL FIBRILLATION [None]
  - HAEMOLYTIC ANAEMIA [None]
  - INFECTION [None]
  - POST PROCEDURAL COMPLICATION [None]
